FAERS Safety Report 4576609-1 (Version None)
Quarter: 2005Q1

REPORT INFORMATION
  Report Type: 
  Country: None (occurrence: None)
  Receive Date: 20050210
  Receipt Date: 20050131
  Transmission Date: 20050727
  Serious: Yes (Hospitalization, Disabling)
  Sender: FDA-Public Use
  Company Number: NO-JNJFOC-20050200177

PATIENT
  Sex: Male

DRUGS (7)
  1. REMICADE [Suspect]
     Route: 042
  2. METHOTREXATE [Suspect]
     Route: 065
  3. FOLIC ACID [Concomitant]
  4. ACETAMINOPHEN [Concomitant]
     Dosage: AS WHEN REQUIRED: INTERMITTENT USE FOR 10-20 YEARS.
  5. NEXIUM [Concomitant]
     Indication: DYSPEPSIA
  6. PREDNISOLONE [Concomitant]
     Indication: RHEUMATOID ARTHRITIS
     Dosage: 20MG + 10MG: INTERMITTENT USE FOR 10-20 YEARS.
  7. VIOXX [Concomitant]

REACTIONS (7)
  - ANAEMIA [None]
  - C-REACTIVE PROTEIN INCREASED [None]
  - ERYTHROPENIA [None]
  - HYPERHIDROSIS [None]
  - NON-HODGKIN'S LYMPHOMA [None]
  - PYREXIA [None]
  - THROMBOCYTOPENIA [None]
